FAERS Safety Report 24794901 (Version 3)
Quarter: 2025Q1

REPORT INFORMATION
  Report Type: Spontaneous
  Country: US (occurrence: US)
  Receive Date: 20241231
  Receipt Date: 20250205
  Transmission Date: 20250408
  Serious: No
  Sender: PFIZER
  Company Number: US-PFIZER INC-202400329732

PATIENT
  Age: 78 Year
  Sex: Female
  Weight: 57.143 kg

DRUGS (1)
  1. PREMARIN [Suspect]
     Active Substance: ESTROGENS, CONJUGATED
     Indication: Pruritus
     Dosage: 0.5 G FOR 2 WEEKS, AT NIGHT
     Route: 067
     Dates: start: 20241213, end: 20241219

REACTIONS (6)
  - Reaction to excipient [Recovered/Resolved]
  - Inflammation [Recovered/Resolved]
  - Pruritus [Recovered/Resolved]
  - Product prescribing error [Unknown]
  - Product administration error [Unknown]
  - Off label use [Unknown]

NARRATIVE: CASE EVENT DATE: 20241213
